FAERS Safety Report 11111568 (Version 12)
Quarter: 2015Q3

REPORT INFORMATION
  Report Type: Report from Study
  Country: DE (occurrence: DE)
  Receive Date: 20150514
  Receipt Date: 20150814
  Transmission Date: 20151125
  Serious: Yes (Hospitalization)
  Sender: FDA-Public Use
  Company Number: DE-ROCHE-1569668

PATIENT
  Sex: Male

DRUGS (19)
  1. METOCLOPRAMIDE. [Concomitant]
     Active Substance: METOCLOPRAMIDE
     Route: 048
     Dates: start: 20150623
  2. SODIUM CHLORIDE. [Concomitant]
     Active Substance: SODIUM CHLORIDE
     Dosage: 1 BAG DAILY
     Route: 048
     Dates: start: 20150623
  3. VINCRISTINE [Suspect]
     Active Substance: VINCRISTINE
     Indication: B-CELL LYMPHOMA
     Dosage: 1 TIME IN 2 WEEKS
     Route: 042
     Dates: start: 20150127, end: 20150409
  4. PREDNISONE. [Suspect]
     Active Substance: PREDNISONE
     Indication: B-CELL LYMPHOMA
     Dosage: 1 TIME IN 2 WEEKS
     Route: 048
     Dates: start: 20150122, end: 20150413
  5. CYCLOPHOSPHAMIDE. [Suspect]
     Active Substance: CYCLOPHOSPHAMIDE
     Indication: B-CELL LYMPHOMA
     Dosage: 1 TIME IN 2 WEEKS
     Route: 042
     Dates: start: 20150126, end: 20150409
  6. SULFAMETHOXAZOLE/TRIMETHOPRIM [Concomitant]
     Active Substance: SULFAMETHOXAZOLE\TRIMETHOPRIM
     Indication: PROPHYLAXIS
     Dosage: MON, WED, FRI
     Route: 048
     Dates: start: 20150120
  7. KALIUMCHLORIDE [Concomitant]
     Indication: ELECTROLYTE IMBALANCE
     Route: 065
     Dates: start: 20150210, end: 20150413
  8. RAMIPRIL. [Concomitant]
     Active Substance: RAMIPRIL
     Indication: HYPERTENSION
     Route: 048
  9. NATRIUMPICOSULFAT [Concomitant]
     Dosage: AS REQUIRED
     Route: 048
  10. MIRTAZAPINE. [Concomitant]
     Active Substance: MIRTAZAPINE
     Indication: SLEEP DISORDER
     Route: 048
     Dates: start: 20150210
  11. URSODEOXYCHOLIC ACID [Concomitant]
     Active Substance: URSODIOL
     Route: 048
     Dates: start: 200202
  12. METOCLOPRAMIDE. [Concomitant]
     Active Substance: METOCLOPRAMIDE
     Indication: NAUSEA
     Route: 048
     Dates: start: 20150210
  13. SODIUM HYDROGEN CARBONATE [Concomitant]
     Active Substance: SODIUM BICARBONATE
     Dosage: 1 BAG DAILY
     Route: 048
     Dates: start: 20150623
  14. PANTOPRAZOLE [Concomitant]
     Active Substance: PANTOPRAZOLE SODIUM
     Indication: PROPHYLAXIS AGAINST GASTROINTESTINAL ULCER
     Route: 048
     Dates: start: 20150120
  15. LEVOTHYROXINE SODIUM. [Concomitant]
     Active Substance: LEVOTHYROXINE SODIUM
     Indication: HYPOTHYROIDISM
     Route: 048
  16. RITUXIMAB [Suspect]
     Active Substance: RITUXIMAB
     Indication: B-CELL LYMPHOMA
     Dosage: ON 03/JUN/2015, HE RECEIVED MOST RECENT CYCLE 6 DOSE OF RITUXIMAB PRIOR TO SAE (SUBILEUS). ON 26/JUN
     Route: 042
     Dates: start: 20150122, end: 20150409
  17. FILGRASTIM [Suspect]
     Active Substance: FILGRASTIM
     Indication: B-CELL LYMPHOMA
     Dosage: 1 TIME IN 2 WEEKS
     Route: 058
     Dates: start: 20150129, end: 20150412
  18. DOXORUBICINE [Suspect]
     Active Substance: DOXORUBICIN
     Indication: B-CELL LYMPHOMA
     Dosage: 1 TIME IN 2 WEEKS
     Route: 042
     Dates: start: 20150126, end: 20150409
  19. POTASSIUM CHLORIDE. [Concomitant]
     Active Substance: POTASSIUM CHLORIDE
     Dosage: 1 BAG DAILY
     Route: 048
     Dates: start: 20150623

REACTIONS (8)
  - General physical health deterioration [Recovered/Resolved with Sequelae]
  - Abdominal pain upper [Unknown]
  - Subileus [Unknown]
  - Colitis [Recovered/Resolved with Sequelae]
  - Abdominal pain upper [Recovered/Resolved]
  - Enteritis [Recovered/Resolved with Sequelae]
  - Diabetic gastroparesis [Recovered/Resolved]
  - Vomiting [Unknown]

NARRATIVE: CASE EVENT DATE: 20150423
